FAERS Safety Report 6931519-7 (Version None)
Quarter: 2010Q3

REPORT INFORMATION
  Report Type: 
  Country: None (occurrence: None)
  Receive Date: 20100819
  Receipt Date: 20100809
  Transmission Date: 20110219
  Serious: Yes (Other)
  Sender: FDA-Public Use
  Company Number: US-CELGENEUS-163-21880-10080785

PATIENT
  Sex: Female

DRUGS (5)
  1. REVLIMID [Suspect]
     Indication: MULTIPLE MYELOMA
     Dosage: 100-150MG
     Route: 048
     Dates: start: 20070201
  2. REVLIMID [Suspect]
     Dosage: 100-150MG
     Route: 048
     Dates: start: 20070501
  3. REVLIMID [Suspect]
     Dosage: 150-100MG
     Route: 048
     Dates: start: 20070601
  4. REVLIMID [Suspect]
     Dosage: 50-100MG
     Route: 048
     Dates: start: 20071101
  5. REVLIMID [Suspect]
     Route: 048
     Dates: start: 20100701

REACTIONS (1)
  - STRESS FRACTURE [None]
